FAERS Safety Report 11743793 (Version 11)
Quarter: 2019Q1

REPORT INFORMATION
  Report Type: Spontaneous
  Country: US (occurrence: US)
  Receive Date: 20151116
  Receipt Date: 20190319
  Transmission Date: 20190417
  Serious: Yes (Other)
  Sender: FDA-Public Use
  Company Number: PHEH2015US023725

PATIENT
  Sex: Female
  Weight: 61.22 kg

DRUGS (2)
  1. ZOFRAN [Suspect]
     Active Substance: ONDANSETRON HYDROCHLORIDE
     Indication: MORNING SICKNESS
     Dosage: 2 MG, UNK
     Route: 042
     Dates: start: 20100914, end: 20101008
  2. ZOFRAN [Suspect]
     Active Substance: ONDANSETRON HYDROCHLORIDE
     Indication: MORNING SICKNESS
     Dosage: 2 MG/ 0.5 ML QH (PER HOUR)
     Route: 058

REACTIONS (20)
  - Maternal exposure during pregnancy [Unknown]
  - Fear [Unknown]
  - Rash [Unknown]
  - Bradycardia [Unknown]
  - Emotional distress [Unknown]
  - Constipation [Unknown]
  - Pain [Unknown]
  - Dysphoria [Unknown]
  - Injury [Unknown]
  - Anxiety [Unknown]
  - Hypotension [Unknown]
  - Tachycardia [Unknown]
  - Arrhythmia [Unknown]
  - Diarrhoea [Unknown]
  - Hypersensitivity [Unknown]
  - Extrapyramidal disorder [Unknown]
  - Depression [Unknown]
  - Transaminases increased [Unknown]
  - Headache [Unknown]
  - Product use in unapproved indication [Unknown]
